FAERS Safety Report 9947049 (Version 1)
Quarter: 2014Q1

REPORT INFORMATION
  Report Type: Report from Study
  Country: US (occurrence: US)
  Receive Date: 20140303
  Receipt Date: 20140303
  Transmission Date: 20141002
  Serious: No
  Sender: FDA-Public Use
  Company Number: US-ABBVIE-13P-163-1059712-00

PATIENT
  Age: 54 Year
  Sex: Female
  Weight: 59.02 kg

DRUGS (10)
  1. HUMIRA [Suspect]
     Indication: RHEUMATOID ARTHRITIS
     Dates: start: 2008
  2. SIMVASTATIN [Concomitant]
     Indication: BLOOD CHOLESTEROL INCREASED
  3. GLYBURIDE [Concomitant]
     Indication: DIABETES MELLITUS
  4. LEVOTHYROXINE [Concomitant]
     Indication: HYPOTHYROIDISM
  5. VITAMIN D [Concomitant]
     Indication: VITAMIN SUPPLEMENTATION
  6. AZATHIOPRINE [Concomitant]
     Indication: RHEUMATOID ARTHRITIS
  7. CELEBREX [Concomitant]
     Indication: RHEUMATOID ARTHRITIS
  8. CYMBALTA [Concomitant]
     Indication: DEPRESSION
  9. DIOVAN [Concomitant]
     Indication: HYPERTENSION
  10. PREDNISONE [Concomitant]
     Indication: RHEUMATOID ARTHRITIS

REACTIONS (4)
  - Feeling abnormal [Not Recovered/Not Resolved]
  - Mobility decreased [Not Recovered/Not Resolved]
  - Joint crepitation [Not Recovered/Not Resolved]
  - Pain [Not Recovered/Not Resolved]
